FAERS Safety Report 5794305-X (Version None)
Quarter: 2008Q2

REPORT INFORMATION
  Report Type: 
  Country: None (occurrence: None)
  Receive Date: 20080625
  Receipt Date: 20080528
  Transmission Date: 20081010
  Serious: No
  Sender: FDA-Public Use
  Company Number: ADE#08-079

PATIENT
  Age: 73 Year
  Sex: Female
  Weight: 83.9154 kg

DRUGS (2)
  1. SALSALATE [Suspect]
     Indication: ARTHRITIS
     Dosage: 3 TABLETS DAILY
     Dates: start: 20070501, end: 20080501
  2. SALSALATE [Suspect]
     Indication: BACK PAIN
     Dosage: 3 TABLETS DAILY
     Dates: start: 20070501, end: 20080501

REACTIONS (2)
  - DEAFNESS BILATERAL [None]
  - TINNITUS [None]
